FAERS Safety Report 6557114-X (Version None)
Quarter: 2010Q1

REPORT INFORMATION
  Report Type: 
  Country: None (occurrence: None)
  Receive Date: 20100128
  Receipt Date: 20100118
  Transmission Date: 20100710
  Serious: Yes (Other)
  Sender: FDA-Public Use
  Company Number: DE-AMGEN-US387060

PATIENT
  Age: 59 Year
  Sex: Female
  Weight: 57 kg

DRUGS (7)
  1. ENBREL [Suspect]
     Indication: SPONDYLITIS
     Route: 058
     Dates: start: 20090122, end: 20091214
  2. HUMIRA [Suspect]
     Indication: SPONDYLITIS
     Route: 058
     Dates: start: 20070927, end: 20080611
  3. AZULFIDINE [Suspect]
     Indication: SPONDYLITIS
     Route: 048
     Dates: start: 20080611, end: 20090122
  4. REMICADE [Suspect]
     Indication: SPONDYLITIS
     Route: 042
     Dates: start: 20070327, end: 20070927
  5. ACTONEL [Concomitant]
     Route: 065
  6. CELEBREX [Concomitant]
     Route: 065
  7. CALCIMAGON [Concomitant]
     Route: 065

REACTIONS (2)
  - CARDIOMEGALY [None]
  - PERICARDIAL EFFUSION [None]
